FAERS Safety Report 16997610 (Version 1)
Quarter: 2019Q4

REPORT INFORMATION
  Report Type: Spontaneous
  Country: US (occurrence: US)
  Receive Date: 20190924
  Receipt Date: 20190924
  Transmission Date: 20200122
  Serious: No
  Sender: FDA-Public Use
  Company Number: None

PATIENT

DRUGS (2)
  1. SODIUM BICARBONATE SODIUM BICARBONATE (PEDIATRIC) [Suspect]
     Active Substance: SODIUM BICARBONATE
  2. SODIUM BICARBONATE SODIUM BICARBONATE (INFANT) [Suspect]
     Active Substance: SODIUM BICARBONATE

REACTIONS (1)
  - Intercepted product selection error [None]
